FAERS Safety Report 9314891 (Version 1)
Quarter: 2013Q2

REPORT INFORMATION
  Report Type: Spontaneous
  Country: US (occurrence: US)
  Receive Date: 20130529
  Receipt Date: 20130529
  Transmission Date: 20140414
  Serious: No
  Sender: FDA-Public Use
  Company Number: US-009507513-1305USA016154

PATIENT
  Age: 21 Year
  Sex: Male

DRUGS (1)
  1. PEGINTRON [Suspect]
     Indication: HEPATITIS C
     Dosage: REDIPEN 120 MCG/0.5 ML, QW
     Route: 058
     Dates: start: 20130422, end: 20130524

REACTIONS (7)
  - Hyperhidrosis [Unknown]
  - Pyrexia [Unknown]
  - Fatigue [Unknown]
  - Influenza like illness [Unknown]
  - Malaise [Recovered/Resolved]
  - Influenza like illness [Unknown]
  - Malaise [Recovered/Resolved]
